FAERS Safety Report 6903148-2 (Version None)
Quarter: 2010Q3

REPORT INFORMATION
  Report Type: 
  Country: None (occurrence: None)
  Receive Date: 20100803
  Receipt Date: 20080827
  Transmission Date: 20110219
  Serious: Yes (Other)
  Sender: FDA-Public Use
  Company Number: US-PFIZER INC-2008071629

PATIENT
  Age: 42 Year
  Sex: Female
  Weight: 71.7 kg

DRUGS (8)
  1. LYRICA [Suspect]
     Indication: FIBROMYALGIA
     Dates: start: 20080501
  2. LYRICA [Suspect]
     Indication: NEUROPATHY PERIPHERAL
  3. CYMBALTA [Concomitant]
  4. OXYCODONE [Concomitant]
     Indication: PAIN
  5. MORPHINE SULFATE [Concomitant]
     Indication: PAIN
  6. ALL OTHER THERAPEUTIC PRODUCTS [Concomitant]
     Indication: ARTHRITIS
     Dosage: WEEKLY
  7. XANAX [Concomitant]
  8. AMBIEN [Concomitant]
     Indication: SLEEP DISORDER

REACTIONS (1)
  - SUICIDE ATTEMPT [None]
